FAERS Safety Report 11900982 (Version 4)
Quarter: 2016Q1

REPORT INFORMATION
  Report Type: Report from Study
  Country: US (occurrence: US)
  Receive Date: 20160108
  Receipt Date: 20160111
  Transmission Date: 20160526
  Serious: No
  Sender: FDA-Public Use
  Company Number: US-ABBVIE-15P-163-1511728-00

PATIENT
  Age: 57 Year
  Sex: Male

DRUGS (1)
  1. VIEKIRA PAK [Suspect]
     Active Substance: DASABUVIR\OMBITASVIR\PARITAPREVIR\RITONAVIR
     Indication: HEPATITIS C
     Dosage: 3 TABLETS IN AM AND 1 TABLET IN PM
     Route: 048
     Dates: start: 20151025

REACTIONS (6)
  - Visual impairment [Unknown]
  - Increased appetite [Unknown]
  - Abdominal pain [Unknown]
  - Depression [Unknown]
  - Abdominal distension [Unknown]
  - Decreased interest [Unknown]

NARRATIVE: CASE EVENT DATE: 20151027
